FAERS Safety Report 6965800-2 (Version None)
Quarter: 2010Q3

REPORT INFORMATION
  Report Type: 
  Country: None (occurrence: None)
  Receive Date: 20100903
  Receipt Date: 20100824
  Transmission Date: 20110219
  Serious: Yes (Hospitalization)
  Sender: FDA-Public Use
  Company Number: US-JNJFOC-20100510119

PATIENT
  Sex: Male
  Weight: 88.45 kg

DRUGS (5)
  1. USTEKINUMAB [Suspect]
     Indication: PSORIASIS
     Route: 058
  2. USTEKINUMAB [Suspect]
     Route: 058
  3. PLACEBO [Suspect]
     Indication: PSORIASIS
  4. DOXYCYCLINE [Concomitant]
  5. BACTRIM [Concomitant]

REACTIONS (1)
  - PULMONARY TUBERCULOSIS [None]
